FAERS Safety Report 22302802 (Version 2)
Quarter: 2023Q2

REPORT INFORMATION
  Report Type: Spontaneous
  Country: US (occurrence: US)
  Receive Date: 20230510
  Receipt Date: 20230525
  Transmission Date: 20230722
  Serious: No
  Sender: FDA-Public Use
  Company Number: US-AIMMUNE THERAPEUTICS, INC.-2023AIMT00414

PATIENT

DRUGS (3)
  1. PALFORZIA [Suspect]
     Active Substance: PEANUT
     Indication: Food allergy
     Dosage: IDE (0.5MG-6MG), ONCE
     Route: 048
     Dates: start: 20230131, end: 20230131
  2. PALFORZIA [Suspect]
     Active Substance: PEANUT
     Dosage: 80 MG, 1X/DAY
     Route: 048
     Dates: start: 20230412
  3. PALFORZIA [Suspect]
     Active Substance: PEANUT
     Dosage: 80 MG, ONCE,LAST DOSE PRIOR EVENT
     Route: 048
     Dates: start: 20230412, end: 20230412

REACTIONS (3)
  - Nasopharyngitis [Recovered/Resolved]
  - Vomiting [Recovered/Resolved]
  - Cough [Recovered/Resolved]

NARRATIVE: CASE EVENT DATE: 20230401
